FAERS Safety Report 24150921 (Version 1)
Quarter: 2024Q3

REPORT INFORMATION
  Report Type: Spontaneous
  Country: US (occurrence: None)
  Receive Date: 20240729
  Receipt Date: 20240729
  Transmission Date: 20241017
  Serious: Yes (unspecified)
  Sender: Public
  Company Number: None

PATIENT
  Age: 66 Year
  Sex: Female

DRUGS (1)
  1. WELIREG [Suspect]
     Active Substance: BELZUTIFAN
     Route: 048
     Dates: start: 20240304, end: 20240618

REACTIONS (2)
  - Anaemia [None]
  - Therapy change [None]

NARRATIVE: CASE EVENT DATE: 20240618
